FAERS Safety Report 17955942 (Version 1)
Quarter: 2020Q2

REPORT INFORMATION
  Report Type: Spontaneous
  Country: FR (occurrence: FR)
  Receive Date: 20200629
  Receipt Date: 20200629
  Transmission Date: 20200714
  Serious: Yes (Hospitalization)
  Sender: FDA-Public Use
  Company Number: FR-TEVA-2020-FR-1791868

PATIENT
  Age: 40 Year
  Sex: Male
  Weight: 107 kg

DRUGS (2)
  1. PARACETAMOL [Concomitant]
     Active Substance: ACETAMINOPHEN
     Route: 065
  2. KETOPROFENE [Suspect]
     Active Substance: KETOPROFEN
     Indication: HEADACHE
     Dosage: 1 DF
     Route: 048
     Dates: start: 20200312, end: 20200312

REACTIONS (2)
  - Condition aggravated [Recovered/Resolved]
  - COVID-19 pneumonia [Recovered/Resolved]

NARRATIVE: CASE EVENT DATE: 20200313
